FAERS Safety Report 6696654-X (Version None)
Quarter: 2010Q2

REPORT INFORMATION
  Report Type: 
  Country: None (occurrence: None)
  Receive Date: 20100422
  Receipt Date: 20100413
  Transmission Date: 20101027
  Serious: Yes (Other)
  Sender: FDA-Public Use
  Company Number: 1000013290

PATIENT
  Age: 84 Year
  Sex: Female
  Weight: 49.3 kg

DRUGS (6)
  1. MEMANTINE HCL [Suspect]
     Indication: DEMENTIA ALZHEIMER'S TYPE
     Dosage: ORAL
     Route: 048
     Dates: start: 20091119
  2. MEMANTINE HCL [Suspect]
     Indication: DEMENTIA ALZHEIMER'S TYPE
     Dosage: 20 MG (20 MG, 1 IN 1 D), ORAL
     Route: 048
     Dates: start: 20091205
  3. SECTRAL [Concomitant]
  4. SERESTA [Concomitant]
  5. CITALOPRAM HYDROBROMIDE [Concomitant]
  6. TAHOR [Concomitant]

REACTIONS (4)
  - ANTEROGRADE AMNESIA [None]
  - GRAND MAL CONVULSION [None]
  - HYPERHIDROSIS [None]
  - PALLOR [None]
